FAERS Safety Report 15427496 (Version 1)
Quarter: 2018Q3

REPORT INFORMATION
  Report Type: Report from Study
  Country: US (occurrence: US)
  Receive Date: 20180925
  Receipt Date: 20180925
  Transmission Date: 20181010
  Serious: Yes (Hospitalization, Other)
  Sender: FDA-Public Use
  Company Number: US-SHIRE-US201836413

PATIENT
  Sex: Male

DRUGS (1)
  1. ELAPRASE [Suspect]
     Active Substance: IDURSULFASE
     Indication: MUCOPOLYSACCHARIDOSIS II
     Dosage: UNK, 1X/WEEK
     Route: 042

REACTIONS (4)
  - Spinal cord oedema [Recovered/Resolved]
  - Myelitis transverse [Recovered/Resolved]
  - Optic neuritis [Recovered/Resolved]
  - Papilloedema [Recovered/Resolved]
